FAERS Safety Report 6408915-X (Version None)
Quarter: 2009Q4

REPORT INFORMATION
  Report Type: 
  Country: None (occurrence: None)
  Receive Date: 20091009
  Receipt Date: 20080908
  Transmission Date: 20100525
  Serious: Yes (Other)
  Sender: FDA-Public Use
  Company Number: CHPA2008US14301

PATIENT
  Age: 48 Year
  Sex: Male

DRUGS (2)
  1. EX-LAX MAX STR LAX PILLS SENNA  (SENNA GLYCOSIDES            (CA SALTS [Suspect]
     Indication: CONSTIPATION
     Dosage: 25 MG, ONCE/SINGLE, ORAL
     Route: 048
     Dates: start: 20080309, end: 20080309
  2. PERIACTIN [Suspect]
     Indication: PALPITATIONS
     Dosage: 2.5 MG, ONCE/SINGLE
     Dates: start: 20080313, end: 20080313

REACTIONS (11)
  - DEMYELINATION [None]
  - DRUG INEFFECTIVE [None]
  - DYSPNOEA [None]
  - FEELING HOT [None]
  - GAIT DISTURBANCE [None]
  - HAEMORRHAGE [None]
  - HYPERHIDROSIS [None]
  - MOVEMENT DISORDER [None]
  - MUSCLE SPASMS [None]
  - PARAESTHESIA [None]
  - PERIPHERAL COLDNESS [None]
